FAERS Safety Report 7888531-3 (Version None)
Quarter: 2011Q4

REPORT INFORMATION
  Report Type: 
  Country: None (occurrence: None)
  Receive Date: 20111103
  Receipt Date: 20111019
  Transmission Date: 20120403
  Serious: Yes (Other)
  Sender: FDA-Public Use
  Company Number: CA-JNJFOC-20111010492

PATIENT
  Sex: Female
  Weight: 138.2 kg

DRUGS (4)
  1. VITAMINS WITH IRON [Concomitant]
  2. VITAMIN B-12 [Concomitant]
  3. REMICADE [Suspect]
     Indication: COLITIS ULCERATIVE
     Route: 042
  4. MESALAMINE [Concomitant]

REACTIONS (1)
  - UTERINE CYST [None]
